FAERS Safety Report 9046113 (Version 1)
Quarter: 2013Q1

REPORT INFORMATION
  Report Type: Spontaneous
  Country: US (occurrence: US)
  Receive Date: 20130201
  Receipt Date: 20130201
  Transmission Date: 20140127
  Serious: No
  Sender: FDA-Public Use
  Company Number: US-009507513-1301USA013624

PATIENT
  Sex: Female

DRUGS (1)
  1. NUVARING [Suspect]
     Indication: CONTRACEPTION
     Dosage: 0.120 MG/DAY ETONOGESTREL AND 0.015 MG/DAY OF ETHINYL ESTRADIOL/21 DAYS
     Route: 067
     Dates: start: 2012

REACTIONS (1)
  - Unintended pregnancy [Unknown]
